FAERS Safety Report 19498829 (Version 1)
Quarter: 2021Q3

REPORT INFORMATION
  Report Type: Report from Study
  Country: ES (occurrence: ES)
  Receive Date: 20210706
  Receipt Date: 20210706
  Transmission Date: 20211014
  Serious: Yes (Other)
  Sender: FDA-Public Use
  Company Number: ES-JNJFOC-20210662419

PATIENT
  Age: 52 Year
  Sex: Male

DRUGS (5)
  1. ZINOSAL [Concomitant]
     Active Substance: TIANEPTINE SODIUM
     Dosage: DOSE: 2.5
  2. QUETIAPINE. [Concomitant]
     Active Substance: QUETIAPINE
     Dosage: REPORTED AS ^PROTIAPINE^; SEDATIVE AT NIGHT
  3. SPRAVATO [Suspect]
     Active Substance: ESKETAMINE
     Indication: DEPRESSION
  4. DESVENLAFAXINE. [Concomitant]
     Active Substance: DESVENLAFAXINE
     Dosage: DOSE: 225
  5. DIAZEPAM. [Concomitant]
     Active Substance: DIAZEPAM
     Dosage: DOSE: 5?10?20

REACTIONS (2)
  - Blood pressure decreased [Unknown]
  - Mental impairment [Unknown]
